FAERS Safety Report 5075821-5 (Version None)
Quarter: 2006Q3

REPORT INFORMATION
  Report Type: 
  Country: None (occurrence: None)
  Receive Date: 20060809
  Receipt Date: 20060731
  Transmission Date: 20061208
  Serious: Yes (Hospitalization)
  Sender: FDA-Public Use
  Company Number: FR-GLAXOSMITHKLINE-B0433360A

PATIENT
  Age: 66 Year
  Sex: Male

DRUGS (5)
  1. ZOPHREN [Suspect]
     Route: 042
     Dates: start: 20060101, end: 20060512
  2. LEXOMIL [Suspect]
     Dosage: 1TAB PER DAY
     Route: 048
  3. VELCADE [Suspect]
     Indication: MYELOMA RECURRENCE
     Dosage: 1.3MGM2 CYCLIC
     Route: 042
     Dates: start: 20060101, end: 20060514
  4. METEOSPASMYL [Concomitant]
     Route: 065
  5. MOVICOL [Concomitant]
     Route: 065

REACTIONS (2)
  - NEUROPATHY PERIPHERAL [None]
  - ORTHOSTATIC HYPOTENSION [None]
